FAERS Safety Report 7762567-5 (Version None)
Quarter: 2011Q3

REPORT INFORMATION
  Report Type: 
  Country: None (occurrence: None)
  Receive Date: 20110920
  Receipt Date: 20110916
  Transmission Date: 20111222
  Serious: Yes (Hospitalization)
  Sender: FDA-Public Use
  Company Number: US-GLAXOSMITHKLINE-A0676438A

PATIENT
  Age: 46 Year
  Sex: Male
  Weight: 106.4 kg

DRUGS (10)
  1. AVANDIA [Suspect]
     Indication: DIABETES MELLITUS
     Dosage: 4MG PER DAY
     Route: 048
     Dates: start: 20041101
  2. AVANDAMET [Suspect]
     Indication: DIABETES MELLITUS
     Route: 048
     Dates: start: 20041201
  3. MARIJUANA [Concomitant]
  4. ALCOHOL [Concomitant]
  5. NEURONTIN [Concomitant]
     Dosage: 300MG THREE TIMES PER DAY
     Route: 048
  6. PEPCID [Concomitant]
     Dosage: 20MG TWICE PER DAY
  7. LANTUS [Concomitant]
     Dosage: 30UNIT IN THE MORNING
     Dates: start: 20041101
  8. COCAINE [Concomitant]
  9. METFORMIN HCL [Concomitant]
     Dosage: 10MG TWICE PER DAY
     Route: 048
  10. ELAVIL [Concomitant]
     Dosage: 25MG AT NIGHT
     Route: 048

REACTIONS (5)
  - HAEMATOMA [None]
  - CARDIAC FAILURE CONGESTIVE [None]
  - ACUTE MYOCARDIAL INFARCTION [None]
  - CORONARY ARTERY DISEASE [None]
  - LUNG HYPERINFLATION [None]
